FAERS Safety Report 8238555-1 (Version None)
Quarter: 2012Q1

REPORT INFORMATION
  Report Type: 
  Country: None (occurrence: None)
  Receive Date: 20120327
  Receipt Date: 20120316
  Transmission Date: 20120608
  Serious: Yes (Other)
  Sender: FDA-Public Use
  Company Number: DE-BRISTOL-MYERS SQUIBB COMPANY-16458044

PATIENT
  Sex: Female

DRUGS (1)
  1. ORENCIA [Suspect]
     Indication: RHEUMATOID ARTHRITIS
     Dosage: LAST INFUSION:13FEB12
     Dates: start: 20110801

REACTIONS (3)
  - DEPRESSION [None]
  - HEADACHE [None]
  - ELECTROCARDIOGRAM ST SEGMENT ABNORMAL [None]
